FAERS Safety Report 21859849 (Version 1)
Quarter: 2023Q1

REPORT INFORMATION
  Report Type: Spontaneous
  Country: US (occurrence: None)
  Receive Date: 20230112
  Receipt Date: 20230112
  Transmission Date: 20230417
  Serious: Yes (Hospitalization)
  Sender: FDA-Public Use
  Company Number: None

PATIENT
  Age: 60 Year
  Sex: Male

DRUGS (2)
  1. MESALAMINE [Suspect]
     Active Substance: MESALAMINE
     Indication: Colitis ulcerative
     Dates: start: 20221212, end: 20230105
  2. MESALAMINE [Suspect]
     Active Substance: MESALAMINE
     Dates: start: 20221212

REACTIONS (3)
  - Drug intolerance [None]
  - Diarrhoea [None]
  - Pouchitis [None]

NARRATIVE: CASE EVENT DATE: 20230109
